FAERS Safety Report 4676613-9 (Version None)
Quarter: 2005Q2

REPORT INFORMATION
  Report Type: 
  Country: None (occurrence: None)
  Receive Date: 20050527
  Receipt Date: 20050516
  Transmission Date: 20051028
  Serious: Yes (Hospitalization)
  Sender: FDA-Public Use
  Company Number: US-ROCHE-405158

PATIENT
  Age: 27 Year
  Sex: Male

DRUGS (4)
  1. ACCUTANE [Suspect]
     Dosage: 10 TO 20 MG TAKEN ONCE DAILY.
     Route: 048
     Dates: start: 20040415, end: 20040915
  2. ACCUTANE [Suspect]
     Route: 048
     Dates: start: 20041115, end: 20050315
  3. ZITHROMAX [Concomitant]
  4. PAXIL [Concomitant]

REACTIONS (3)
  - DRY SKIN [None]
  - IDIOPATHIC THROMBOCYTOPENIC PURPURA [None]
  - LIP DRY [None]
